FAERS Safety Report 15703287 (Version 2)
Quarter: 2019Q1

REPORT INFORMATION
  Report Type: Spontaneous
  Country: US (occurrence: US)
  Receive Date: 20181210
  Receipt Date: 20190126
  Transmission Date: 20190417
  Serious: No
  Sender: FDA-Public Use
  Company Number: US-TEVA-2018-US-986101

PATIENT
  Age: 50 Year
  Sex: Male

DRUGS (1)
  1. NORCO [Suspect]
     Active Substance: ACETAMINOPHEN\HYDROCODONE BITARTRATE
     Dosage: ONCE OR TWICE
     Route: 065

REACTIONS (3)
  - Drug ineffective [Unknown]
  - Disorientation [Unknown]
  - Vertigo [Unknown]
